FAERS Safety Report 4445893-7 (Version None)
Quarter: 2004Q3

REPORT INFORMATION
  Report Type: 
  Country: None (occurrence: None)
  Receive Date: 20040908
  Receipt Date: 20040908
  Transmission Date: 20050211
  Serious: Yes (Hospitalization)
  Sender: FDA-Public Use
  Company Number: None

PATIENT
  Age: 58 Year
  Sex: Male

DRUGS (9)
  1. WARFARIN SODIUM [Suspect]
     Indication: CEREBROVASCULAR ACCIDENT
     Dosage: 5 MG QD
     Dates: start: 19980601
  2. OXYCONTIN [Concomitant]
  3. LACTULOSE [Concomitant]
  4. NIFEDIPINE [Concomitant]
  5. ZANTAC [Concomitant]
  6. PHENYTOIN [Concomitant]
  7. QUETIAPINE [Concomitant]
  8. LORAZEPAM [Concomitant]
  9. NITROGLYCERIN [Concomitant]

REACTIONS (2)
  - HAEMORRHAGE [None]
  - PROCEDURAL SITE REACTION [None]
